FAERS Safety Report 8183054-9 (Version None)
Quarter: 2012Q1

REPORT INFORMATION
  Report Type: 
  Country: None (occurrence: None)
  Receive Date: 20120305
  Receipt Date: 20120220
  Transmission Date: 20120608
  Serious: Yes (Other)
  Sender: FDA-Public Use
  Company Number: 2012SP000658

PATIENT
  Age: 21 Year
  Sex: Male

DRUGS (3)
  1. DESLORATADINE [Concomitant]
     Dates: start: 20111001
  2. CICLESONIDE [Suspect]
     Indication: ASTHMA
     Route: 055
     Dates: start: 20111001, end: 20111001
  3. MONTELUKAST [Concomitant]
     Dates: start: 20111001

REACTIONS (1)
  - SUFFOCATION FEELING [None]
